FAERS Safety Report 5346268-9 (Version None)
Quarter: 2007Q2

REPORT INFORMATION
  Report Type: 
  Country: None (occurrence: None)
  Receive Date: 20070605
  Receipt Date: 20070525
  Transmission Date: 20071010
  Serious: Yes (Other)
  Sender: FDA-Public Use
  Company Number: GB-AMGEN-US224443

PATIENT
  Sex: Female
  Weight: 95.6 kg

DRUGS (9)
  1. ENBREL [Suspect]
     Indication: RHEUMATOID ARTHRITIS
     Route: 058
     Dates: start: 20070101, end: 20070401
  2. METHOTREXATE SODIUM [Concomitant]
     Indication: RHEUMATOID ARTHRITIS
     Route: 058
     Dates: start: 20040801
  3. MICROGYNON [Concomitant]
     Indication: CONTRACEPTION
     Dosage: UNKNOWN
     Route: 048
  4. FOLIC ACID [Concomitant]
     Indication: RHEUMATOID ARTHRITIS
     Route: 048
     Dates: start: 20020801
  5. DIHYDROCODEINE BITARTRATE INJ [Concomitant]
     Indication: ANALGESIC EFFECT
     Dosage: 30MG PRN
     Route: 048
     Dates: start: 20051101
  6. DIHYDROCODEINE BITARTRATE INJ [Concomitant]
     Indication: RHEUMATOID ARTHRITIS
  7. LEVOTHYROXINE SODIUM [Concomitant]
     Indication: HYPOTHYROIDISM
     Dosage: UNKNOWN
     Dates: start: 20060401
  8. SALAZOPYRIN [Concomitant]
     Indication: RHEUMATOID ARTHRITIS
     Route: 048
     Dates: start: 20020301
  9. DICLOFENAC [Concomitant]
     Indication: RHEUMATOID ARTHRITIS
     Route: 048
     Dates: start: 20020201

REACTIONS (4)
  - ANXIETY [None]
  - CHILLS [None]
  - DYSPNOEA [None]
  - FLUSHING [None]
